FAERS Safety Report 21430112 (Version 6)
Quarter: 2022Q4

REPORT INFORMATION
  Report Type: Spontaneous
  Country: CA (occurrence: CA)
  Receive Date: 20221009
  Receipt Date: 20221230
  Transmission Date: 20230113
  Serious: Yes (Death, Disabling)
  Sender: FDA-Public Use
  Company Number: CA-ROCHE-3029892

PATIENT
  Age: 80 Year
  Sex: Male
  Weight: 69 kg

DRUGS (221)
  1. VITAMIN K1 [Suspect]
     Active Substance: PHYTONADIONE
     Indication: Vitamin supplementation
     Route: 042
  2. VITAMIN K1 [Suspect]
     Active Substance: PHYTONADIONE
     Indication: Product used for unknown indication
  3. CEFTRIAXONE SODIUM [Suspect]
     Active Substance: CEFTRIAXONE SODIUM
     Indication: Bacterial infection
     Route: 042
  4. CEFTRIAXONE SODIUM [Suspect]
     Active Substance: CEFTRIAXONE SODIUM
     Route: 042
  5. CEFTRIAXONE SODIUM [Suspect]
     Active Substance: CEFTRIAXONE SODIUM
     Route: 042
  6. CEFTRIAXONE SODIUM [Suspect]
     Active Substance: CEFTRIAXONE SODIUM
     Dosage: UNK
     Route: 065
  7. PHYTONADIONE [Suspect]
     Active Substance: PHYTONADIONE
     Indication: Vitamin supplementation
     Dosage: 5 MILLIGRAM, QD
     Route: 042
  8. PHYTONADIONE [Suspect]
     Active Substance: PHYTONADIONE
     Indication: Off label use
     Route: 017
  9. PHYTONADIONE [Suspect]
     Active Substance: PHYTONADIONE
     Route: 042
  10. PHYTONADIONE [Suspect]
     Active Substance: PHYTONADIONE
     Dosage: 5 MILLIGRAM, PRN
     Route: 017
  11. CEFTRIAXONE [Suspect]
     Active Substance: CEFTRIAXONE
     Indication: Bacterial infection
     Route: 042
  12. CEFTRIAXONE [Suspect]
     Active Substance: CEFTRIAXONE
     Indication: Off label use
     Route: 042
  13. CEFTRIAXONE [Suspect]
     Active Substance: CEFTRIAXONE
     Indication: Product used for unknown indication
  14. OSELTAMIVIR [Suspect]
     Active Substance: OSELTAMIVIR
     Indication: Product used for unknown indication
     Dosage: UNK
     Route: 065
  15. CALCITRIOL [Suspect]
     Active Substance: CALCITRIOL
     Indication: Product used for unknown indication
     Route: 065
  16. CALCITRIOL [Suspect]
     Active Substance: CALCITRIOL
     Route: 065
  17. CALCITRIOL [Suspect]
     Active Substance: CALCITRIOL
     Route: 065
  18. CALCITRIOL [Suspect]
     Active Substance: CALCITRIOL
     Route: 065
  19. HEPARIN SODIUM [Suspect]
     Active Substance: HEPARIN SODIUM
     Indication: Anticoagulant therapy
     Route: 042
  20. HEPARIN SODIUM [Suspect]
     Active Substance: HEPARIN SODIUM
     Route: 042
  21. HEPARIN SODIUM [Suspect]
     Active Substance: HEPARIN SODIUM
     Route: 042
  22. HEPARIN SODIUM [Suspect]
     Active Substance: HEPARIN SODIUM
     Route: 017
  23. HEPARIN SODIUM [Suspect]
     Active Substance: HEPARIN SODIUM
     Dosage: 50 MILLILITER, QD
     Route: 065
  24. HEPARIN SODIUM [Suspect]
     Active Substance: HEPARIN SODIUM
     Dosage: 50 MILLILITER, PRN
     Route: 042
  25. HEPARIN SODIUM [Suspect]
     Active Substance: HEPARIN SODIUM
     Dosage: 50 MILLILITER, QD
     Route: 042
  26. HEPARIN SODIUM [Suspect]
     Active Substance: HEPARIN SODIUM
     Route: 042
  27. ALLOPURINOL [Suspect]
     Active Substance: ALLOPURINOL
     Indication: Blood uric acid increased
     Route: 048
  28. ALLOPURINOL [Suspect]
     Active Substance: ALLOPURINOL
     Indication: Off label use
     Route: 048
  29. ALLOPURINOL [Suspect]
     Active Substance: ALLOPURINOL
     Indication: Intentional product misuse
     Route: 048
  30. ALLOPURINOL [Suspect]
     Active Substance: ALLOPURINOL
     Route: 048
  31. ALLOPURINOL [Suspect]
     Active Substance: ALLOPURINOL
     Route: 048
  32. DARBEPOETIN ALFA [Suspect]
     Active Substance: DARBEPOETIN ALFA
     Indication: Anaemia
     Dosage: 10 MG, QOD
     Route: 065
  33. DARBEPOETIN ALFA [Suspect]
     Active Substance: DARBEPOETIN ALFA
     Dosage: 0.71 UG, QOD
     Route: 065
  34. DEXTROSE [Suspect]
     Active Substance: DEXTROSE
     Indication: Nutritional supplementation
     Route: 042
  35. DEXTROSE [Suspect]
     Active Substance: DEXTROSE
     Route: 042
  36. DEXTROSE [Suspect]
     Active Substance: DEXTROSE
     Route: 042
  37. DEXTROSE [Suspect]
     Active Substance: DEXTROSE
     Route: 042
  38. DEXTROSE [Suspect]
     Active Substance: DEXTROSE
     Dosage: 12.5 MILLIGRAM, PRN
     Route: 042
  39. DEXTROSE [Suspect]
     Active Substance: DEXTROSE
     Dosage: 12 GRAM, QD
     Route: 042
  40. DEXTROSE [Suspect]
     Active Substance: DEXTROSE
     Dosage: 12 GRAM, QD
     Route: 042
  41. DEXTROSE [Suspect]
     Active Substance: DEXTROSE
     Route: 065
  42. CALCITRIOL [Suspect]
     Active Substance: CALCITRIOL
     Indication: Vitamin D
     Route: 048
  43. CALCITRIOL [Suspect]
     Active Substance: CALCITRIOL
     Route: 048
  44. CALCITRIOL [Suspect]
     Active Substance: CALCITRIOL
     Dosage: 500 MILLIGRAM, Q8HR
     Route: 048
  45. TAMIFLU [Suspect]
     Active Substance: OSELTAMIVIR PHOSPHATE
     Indication: Product used for unknown indication
     Route: 065
  46. ALBUTEROL [Concomitant]
     Active Substance: ALBUTEROL
     Indication: Off label use
     Dosage: UNK, 4 /DAY (4 EVERY 1 DAYS)
  47. ALBUTEROL [Concomitant]
     Active Substance: ALBUTEROL
     Indication: Chronic obstructive pulmonary disease
     Dosage: 1 DOSAGE FORM, EVERY 6HR (1 EVERY 6 HOURS)
  48. ALBUTEROL [Concomitant]
     Active Substance: ALBUTEROL
     Indication: Intentional product misuse
     Dosage: 1 DOSAGE FORM
  49. ALBUTEROL [Concomitant]
     Active Substance: ALBUTEROL
     Indication: Chronic obstructive pulmonary disease
     Dosage: UNK UNK, QD
  50. ALBUTEROL [Concomitant]
     Active Substance: ALBUTEROL
     Dosage: UNK, (PER 6 HOURS)
  51. ALBUTEROL [Concomitant]
     Active Substance: ALBUTEROL
     Dosage: 1 DOSAGE FORM, Q6HR
  52. ALBUTEROL [Concomitant]
     Active Substance: ALBUTEROL
     Dosage: 4 DOSAGE FORM, QD
  53. ALBUTEROL [Concomitant]
     Active Substance: ALBUTEROL
     Dosage: 4 DOSAGE FORM, Q6HR
  54. ALBUTEROL [Concomitant]
     Active Substance: ALBUTEROL
     Dosage: 1 DOSAGE FORM QID
  55. ALBUTEROL [Concomitant]
     Active Substance: ALBUTEROL
     Dosage: UNK
  56. VITAMIN D3 [Concomitant]
     Active Substance: CHOLECALCIFEROL
     Indication: Off label use
     Dosage: UNK
  57. BISMUTH SUBSALICYLATE [Concomitant]
     Active Substance: BISMUTH SUBSALICYLATE
     Dosage: 133 MILLILITER
  58. SIMVASTATIN [Concomitant]
     Active Substance: SIMVASTATIN
     Indication: Blood cholesterol increased
     Dosage: UNKNOWN
  59. SIMVASTATIN [Concomitant]
     Active Substance: SIMVASTATIN
     Indication: Vitamin supplementation
     Dosage: 40 MG, QD
  60. SIMVASTATIN [Concomitant]
     Active Substance: SIMVASTATIN
     Indication: Product used for unknown indication
     Dosage: 40 MG, QD
  61. SIMVASTATIN [Concomitant]
     Active Substance: SIMVASTATIN
     Indication: Off label use
     Dosage: 40 MG, QD
  62. SIMVASTATIN [Concomitant]
     Active Substance: SIMVASTATIN
     Indication: Blood cholesterol increased
     Dosage: 40 MG, QD
  63. SIMVASTATIN [Concomitant]
     Active Substance: SIMVASTATIN
     Indication: Intentional product misuse
     Dosage: UNK
  64. SIMVASTATIN [Concomitant]
     Active Substance: SIMVASTATIN
     Dosage: UNK
  65. SIMVASTATIN [Concomitant]
     Active Substance: SIMVASTATIN
     Dosage: 40 MG, QD (ONCE A DAY)
  66. AMLODIPINE MESYLATE [Concomitant]
     Active Substance: AMLODIPINE MESYLATE
     Indication: Off label use
     Dosage: 1 UNK, 1 /DAY
  67. BETA CAROTENE [Concomitant]
     Active Substance: BETA CAROTENE
     Indication: Nutritional supplementation
     Dosage: 12.5 GRAM
  68. BETA CAROTENE [Concomitant]
     Active Substance: BETA CAROTENE
     Indication: Product used for unknown indication
     Dosage: 12.5 INTERNATIONAL UNIT (AS REQUIRED)
  69. BETA CAROTENE [Concomitant]
     Active Substance: BETA CAROTENE
     Indication: Nutritional supplementation
     Dosage: UNK
  70. PYRIDOXINE HYDROCHLORIDE [Concomitant]
     Active Substance: PYRIDOXINE HYDROCHLORIDE
     Indication: Vitamin supplementation
     Dosage: UNK UNK, QD
  71. PYRIDOXINE HYDROCHLORIDE [Concomitant]
     Active Substance: PYRIDOXINE HYDROCHLORIDE
     Indication: Vitamin supplementation
     Dosage: UNKNOWN
  72. PYRIDOXINE HYDROCHLORIDE [Concomitant]
     Active Substance: PYRIDOXINE HYDROCHLORIDE
     Indication: Off label use
     Dosage: UNK, QID
  73. PYRIDOXINE HYDROCHLORIDE [Concomitant]
     Active Substance: PYRIDOXINE HYDROCHLORIDE
     Indication: Constipation
     Dosage: UNK
  74. PYRIDOXINE HYDROCHLORIDE [Concomitant]
     Active Substance: PYRIDOXINE HYDROCHLORIDE
     Indication: Product used for unknown indication
     Dosage: 10 MG, PRN
  75. PYRIDOXINE HYDROCHLORIDE [Concomitant]
     Active Substance: PYRIDOXINE HYDROCHLORIDE
     Indication: Analgesic therapy
     Dosage: 1 INTERNATIONAL UNIT, 1 /DAY
  76. PYRIDOXINE HYDROCHLORIDE [Concomitant]
     Active Substance: PYRIDOXINE HYDROCHLORIDE
     Dosage: UNK UNK, QID
  77. PYRIDOXINE HYDROCHLORIDE [Concomitant]
     Active Substance: PYRIDOXINE HYDROCHLORIDE
     Dosage: UNK
  78. PYRIDOXINE HYDROCHLORIDE [Concomitant]
     Active Substance: PYRIDOXINE HYDROCHLORIDE
     Dosage: 4 UNK, QID
  79. PYRIDOXINE HYDROCHLORIDE [Concomitant]
     Active Substance: PYRIDOXINE HYDROCHLORIDE
     Dosage: 2 UNK
  80. PYRIDOXINE HYDROCHLORIDE [Concomitant]
     Active Substance: PYRIDOXINE HYDROCHLORIDE
     Dosage: 4 INTERNATIONAL UNIT, 1 /DAY
  81. PYRIDOXINE HYDROCHLORIDE [Concomitant]
     Active Substance: PYRIDOXINE HYDROCHLORIDE
     Dosage: UNK
  82. PYRIDOXINE HYDROCHLORIDE [Concomitant]
     Active Substance: PYRIDOXINE HYDROCHLORIDE
     Dosage: 10 MG, PRN
  83. PYRIDOXINE HYDROCHLORIDE [Concomitant]
     Active Substance: PYRIDOXINE HYDROCHLORIDE
     Dosage: UNK
  84. PYRIDOXINE HYDROCHLORIDE [Concomitant]
     Active Substance: PYRIDOXINE HYDROCHLORIDE
     Dosage: 4 INTERNATIONAL UNIT (4 PER EVERY 6 HOURS)
  85. PYRIDOXINE HYDROCHLORIDE [Concomitant]
     Active Substance: PYRIDOXINE HYDROCHLORIDE
     Dosage: 10 MG
  86. PYRIDOXINE HYDROCHLORIDE [Concomitant]
     Active Substance: PYRIDOXINE HYDROCHLORIDE
     Dosage: UNK
  87. PYRIDOXINE HYDROCHLORIDE [Concomitant]
     Active Substance: PYRIDOXINE HYDROCHLORIDE
     Dosage: UNK, CAPSULES
  88. PYRIDOXINE HYDROCHLORIDE [Concomitant]
     Active Substance: PYRIDOXINE HYDROCHLORIDE
     Dosage: UNK, EVERY 6HR (QID)
  89. PYRIDOXINE HYDROCHLORIDE [Concomitant]
     Active Substance: PYRIDOXINE HYDROCHLORIDE
     Dosage: UNK
  90. PYRIDOXINE HYDROCHLORIDE [Concomitant]
     Active Substance: PYRIDOXINE HYDROCHLORIDE
     Dosage: UNK, 1 /DAY (4 EVERY 1 DAYS)
  91. PYRIDOXINE HYDROCHLORIDE [Concomitant]
     Active Substance: PYRIDOXINE HYDROCHLORIDE
     Dosage: UNK UNK, QID
  92. PYRIDOXINE HYDROCHLORIDE [Concomitant]
     Active Substance: PYRIDOXINE HYDROCHLORIDE
     Dosage: UNK UNK, QD
  93. SODIUM PHOSPHATE, MONOBASIC [Concomitant]
     Active Substance: SODIUM PHOSPHATE, MONOBASIC
     Indication: Constipation
     Dosage: 133 ML, PRN
  94. SODIUM PHOSPHATE, MONOBASIC [Concomitant]
     Active Substance: SODIUM PHOSPHATE, MONOBASIC
     Indication: Constipation
     Dosage: 133 ML, PRN
  95. SODIUM PHOSPHATE, MONOBASIC [Concomitant]
     Active Substance: SODIUM PHOSPHATE, MONOBASIC
     Dosage: 133 MG
  96. SODIUM PHOSPHATE, MONOBASIC [Concomitant]
     Active Substance: SODIUM PHOSPHATE, MONOBASIC
     Dosage: 133 ML, PRN
  97. RIBOFLAVIN 5^-PHOSPHATE SODIUM [Concomitant]
     Active Substance: RIBOFLAVIN 5^-PHOSPHATE SODIUM
     Indication: Constipation
     Dosage: UNK
  98. RIBOFLAVIN 5^-PHOSPHATE SODIUM [Concomitant]
     Active Substance: RIBOFLAVIN 5^-PHOSPHATE SODIUM
     Indication: Product used for unknown indication
     Dosage: 17 GRAM, 1 /DAY
  99. RIBOFLAVIN 5^-PHOSPHATE SODIUM [Concomitant]
     Active Substance: RIBOFLAVIN 5^-PHOSPHATE SODIUM
     Dosage: UNK
  100. SIMVASTATIN [Concomitant]
     Active Substance: SIMVASTATIN
     Indication: Blood cholesterol increased
     Dosage: 40 MILLIGRAM, 1 /DAY (40 MILLIGRAM, QD)
  101. DISODIUM HYDROGEN CITRATE [Concomitant]
     Active Substance: DISODIUM HYDROGEN CITRATE
     Indication: Thrombosis
     Dosage: 2.5 MILLILITER
  102. DISODIUM HYDROGEN CITRATE [Concomitant]
     Active Substance: DISODIUM HYDROGEN CITRATE
     Indication: Anticoagulant therapy
     Dosage: 2.5 ML, NECESSARY (4GM/100ML SOLUTION UNASSIGNED) ANTICOAGULANT
  103. ATROVENT [Concomitant]
     Active Substance: IPRATROPIUM BROMIDE
     Indication: Sleep disorder therapy
     Dosage: UNKNOWN
  104. ATROVENT [Concomitant]
     Active Substance: IPRATROPIUM BROMIDE
     Indication: Dyspnoea
     Dosage: UNK, Q6H
  105. ATROVENT [Concomitant]
     Active Substance: IPRATROPIUM BROMIDE
     Indication: Dyspnoea
     Dosage: UNK UNK, QID
  106. ATROVENT [Concomitant]
     Active Substance: IPRATROPIUM BROMIDE
     Indication: Sleep disorder therapy
     Dosage: UNK, Q8HR
  107. ATROVENT [Concomitant]
     Active Substance: IPRATROPIUM BROMIDE
     Indication: Product used for unknown indication
     Dosage: EVERY 6 HOURS
  108. ATROVENT [Concomitant]
     Active Substance: IPRATROPIUM BROMIDE
     Indication: Somnolence
     Dosage: UNK
  109. ATROVENT [Concomitant]
     Active Substance: IPRATROPIUM BROMIDE
     Indication: Dyspnoea
     Dosage: Q4D
  110. ATROVENT [Concomitant]
     Active Substance: IPRATROPIUM BROMIDE
     Indication: Off label use
     Dosage: UNKNOWN
  111. ATROVENT [Concomitant]
     Active Substance: IPRATROPIUM BROMIDE
     Dosage: UNK
  112. ATROVENT [Concomitant]
     Active Substance: IPRATROPIUM BROMIDE
     Dosage: UNK UNK, QID
  113. ATROVENT [Concomitant]
     Active Substance: IPRATROPIUM BROMIDE
     Dosage: UNK
  114. ATROVENT [Concomitant]
     Active Substance: IPRATROPIUM BROMIDE
     Dosage: 1 DF, Q6HR
  115. ATROVENT [Concomitant]
     Active Substance: IPRATROPIUM BROMIDE
     Dosage: UNK
  116. ATROVENT [Concomitant]
     Active Substance: IPRATROPIUM BROMIDE
     Dosage: UNK
  117. ATROVENT [Concomitant]
     Active Substance: IPRATROPIUM BROMIDE
     Dosage: UNK
  118. ATROVENT [Concomitant]
     Active Substance: IPRATROPIUM BROMIDE
     Dosage: UNK UNK, QID
  119. ATROVENT [Concomitant]
     Active Substance: IPRATROPIUM BROMIDE
     Dosage: UNK, Q6H
  120. ATROVENT [Concomitant]
     Active Substance: IPRATROPIUM BROMIDE
     Dosage: UNK UNK, QID
  121. ATROVENT [Concomitant]
     Active Substance: IPRATROPIUM BROMIDE
     Dosage: 4 UNK, QD
  122. ATROVENT [Concomitant]
     Active Substance: IPRATROPIUM BROMIDE
     Dosage: UNK, Q6HR
  123. ATROVENT [Concomitant]
     Active Substance: IPRATROPIUM BROMIDE
     Dosage: 4 EVERY 1 DAYS
  124. ATROVENT [Concomitant]
     Active Substance: IPRATROPIUM BROMIDE
     Dosage: UNK UNK, Q8HR
  125. ATROVENT [Concomitant]
     Active Substance: IPRATROPIUM BROMIDE
     Dosage: 1 DF, Q6HR
  126. ATROVENT [Concomitant]
     Active Substance: IPRATROPIUM BROMIDE
     Dosage: UNK, EVERY 4DAY (UNK, Q4D)
  127. ATROVENT [Concomitant]
     Active Substance: IPRATROPIUM BROMIDE
     Dosage: 1 DOSAGE FORM, EVERY 6HR (1 DOSAGE FORM, Q6HR)
  128. ATROVENT [Concomitant]
     Active Substance: IPRATROPIUM BROMIDE
     Dosage: 1 DOSAGE FORM, EVERY 6HR
  129. ATROVENT [Concomitant]
     Active Substance: IPRATROPIUM BROMIDE
     Dosage: 1 DF, Q8HR
  130. ATROVENT [Concomitant]
     Active Substance: IPRATROPIUM BROMIDE
     Dosage: UNK UNK, QID
  131. ATROVENT [Concomitant]
     Active Substance: IPRATROPIUM BROMIDE
     Dosage: UNK UNK, QD
  132. ATROVENT [Concomitant]
     Active Substance: IPRATROPIUM BROMIDE
     Dosage: UNK
  133. ATROVENT [Concomitant]
     Active Substance: IPRATROPIUM BROMIDE
     Dosage: 1 DOSAGE FORM, EVERY 8HR
  134. ATROVENT [Concomitant]
     Active Substance: IPRATROPIUM BROMIDE
     Dosage: UNK, 1 /DAY (UNK, QID)
  135. ATROVENT [Concomitant]
     Active Substance: IPRATROPIUM BROMIDE
     Dosage: UNK, EVERY 4DAY
  136. ATROVENT [Concomitant]
     Active Substance: IPRATROPIUM BROMIDE
     Dosage: UNK, EVERY 8HR (UNK, Q8HR)
  137. ATROVENT [Concomitant]
     Active Substance: IPRATROPIUM BROMIDE
     Dosage: UNK
  138. ATROVENT [Concomitant]
     Active Substance: IPRATROPIUM BROMIDE
     Dosage: UNK, Q4D
  139. ATROVENT [Concomitant]
     Active Substance: IPRATROPIUM BROMIDE
     Dosage: UNK UNK, QD
  140. DALTEPARIN SODIUM [Concomitant]
     Active Substance: DALTEPARIN SODIUM
     Indication: Pulmonary embolism
     Dosage: UNK
  141. DALTEPARIN SODIUM [Concomitant]
     Active Substance: DALTEPARIN SODIUM
     Indication: Thrombosis
     Dosage: UNK
  142. DALTEPARIN SODIUM [Concomitant]
     Active Substance: DALTEPARIN SODIUM
     Indication: Pulmonary embolism
     Dosage: UNK
  143. DALTEPARIN SODIUM [Concomitant]
     Active Substance: DALTEPARIN SODIUM
     Indication: Thrombosis
     Dosage: UNK
  144. DALTEPARIN SODIUM [Concomitant]
     Active Substance: DALTEPARIN SODIUM
     Indication: Product used for unknown indication
     Dosage: UNK
  145. DALTEPARIN SODIUM [Concomitant]
     Active Substance: DALTEPARIN SODIUM
     Dosage: UNK
  146. DALTEPARIN SODIUM [Concomitant]
     Active Substance: DALTEPARIN SODIUM
     Dosage: 12.5 MILLIGRAM
  147. DALTEPARIN SODIUM [Concomitant]
     Active Substance: DALTEPARIN SODIUM
     Dosage: 12.5 MILLIGRAM
  148. DALTEPARIN SODIUM [Concomitant]
     Active Substance: DALTEPARIN SODIUM
     Dosage: UNK
  149. DALTEPARIN SODIUM [Concomitant]
     Active Substance: DALTEPARIN SODIUM
     Dosage: 2.5 MILLILITER
  150. CALCIUM GLUCONATE [Concomitant]
     Active Substance: CALCIUM GLUCONATE
     Dosage: UNK
  151. VASOPRESSIN [Concomitant]
     Active Substance: VASOPRESSIN
     Indication: Drug therapy
     Dosage: 50 ML, QD
  152. VASOPRESSIN [Concomitant]
     Active Substance: VASOPRESSIN
     Indication: Product used for unknown indication
     Dosage: UNKNOWN
  153. VASOPRESSIN [Concomitant]
     Active Substance: VASOPRESSIN
     Indication: Drug therapy
     Dosage: UNKNOWN
  154. VASOPRESSIN [Concomitant]
     Active Substance: VASOPRESSIN
     Indication: Product used for unknown indication
     Dosage: THERAPY START DATE ASKU, THERAPY END DATE ASKU
  155. VASOPRESSIN [Concomitant]
     Active Substance: VASOPRESSIN
     Dosage: UNKNOWN
  156. VASOPRESSIN [Concomitant]
     Active Substance: VASOPRESSIN
     Dosage: UNKNOWN
  157. VASOPRESSIN [Concomitant]
     Active Substance: VASOPRESSIN
     Dosage: UNKNOWN
  158. VASOPRESSIN [Concomitant]
     Active Substance: VASOPRESSIN
     Dosage: UNKNOWN
  159. VASOPRESSIN [Concomitant]
     Active Substance: VASOPRESSIN
     Dosage: UNKNOWN
  160. VASOPRESSIN [Concomitant]
     Active Substance: VASOPRESSIN
     Dosage: UNK
  161. VASOPRESSIN [Concomitant]
     Active Substance: VASOPRESSIN
     Dosage: 250 ML, QD
  162. VASOPRESSIN [Concomitant]
     Active Substance: VASOPRESSIN
     Dosage: UNK
  163. VASOPRESSIN [Concomitant]
     Active Substance: VASOPRESSIN
     Dosage: UNK
  164. VASOPRESSIN [Concomitant]
     Active Substance: VASOPRESSIN
     Dosage: 50 MILLILITER, ONCE A DAY
  165. VASOPRESSIN [Concomitant]
     Active Substance: VASOPRESSIN
     Dosage: 1 INTERNATIONAL UNIT, 1 /DAY
  166. VASOPRESSIN [Concomitant]
     Active Substance: VASOPRESSIN
     Dosage: 250 MILLILITER, QD (ONCE A DAY)
  167. VASOPRESSIN [Concomitant]
     Active Substance: VASOPRESSIN
     Dosage: UNKNOWN
  168. VASOPRESSIN [Concomitant]
     Active Substance: VASOPRESSIN
     Dosage: UNK
  169. HYDROMORPHONE [Concomitant]
     Active Substance: HYDROMORPHONE
     Indication: Analgesic therapy
     Dosage: 1 MILLIGRAM Q4HR
  170. HYDROMORPHONE [Concomitant]
     Active Substance: HYDROMORPHONE
     Indication: Product used for unknown indication
     Dosage: 6 MG, QID
  171. HYDROMORPHONE [Concomitant]
     Active Substance: HYDROMORPHONE
     Indication: Off label use
     Dosage: 6 MILLIGRAM FOUR TIMES PER DAY
  172. HYDROMORPHONE [Concomitant]
     Active Substance: HYDROMORPHONE
     Indication: Intentional product misuse
     Dosage: 24 MILLIGRAM, EVERY 4HR
  173. HYDROMORPHONE [Concomitant]
     Active Substance: HYDROMORPHONE
     Indication: Analgesic therapy
     Dosage: 1 MILLIGRAM, EVERY 4HR
  174. HYDROMORPHONE [Concomitant]
     Active Substance: HYDROMORPHONE
     Dosage: 6 MILLIGRAM, 6 EVERY 1 DAYS
  175. HYDROMORPHONE [Concomitant]
     Active Substance: HYDROMORPHONE
     Dosage: 1 MILLIGRAM, EVERY 6HR
  176. HYDROMORPHONE [Concomitant]
     Active Substance: HYDROMORPHONE
     Dosage: 4 MILLIGRAM, EVERY 4HR
  177. HYDROMORPHONE [Concomitant]
     Active Substance: HYDROMORPHONE
     Dosage: 6 MILLIGRAM, EVERY 4DAY (4 EVERY 1 DAYS)
  178. HYDROMORPHONE [Concomitant]
     Active Substance: HYDROMORPHONE
     Dosage: 6 MILLIGRAM, EVERY 4HR (1 EVERY 4 HOURS)
  179. HYDROMORPHONE [Concomitant]
     Active Substance: HYDROMORPHONE
     Dosage: 1 MILLIGRAM, EVERY 4DAY (4 EVERY 1 DAYS)
  180. HYDROMORPHONE [Concomitant]
     Active Substance: HYDROMORPHONE
     Dosage: 24 MILLIGRAM, EVERY 4DAY (4 EVERY 1 DAYS)
  181. HYDROMORPHONE [Concomitant]
     Active Substance: HYDROMORPHONE
     Dosage: 24 MILLIGRAM, EVERY 6HR (1 EVERY 6 HOURS)
  182. HYDROMORPHONE [Concomitant]
     Active Substance: HYDROMORPHONE
     Dosage: 6 MILLIGRAM, EVERY 6HR (1 EVERY 6 HOURS)
  183. HYDROMORPHONE [Concomitant]
     Active Substance: HYDROMORPHONE
     Dosage: 6 MILLIGRAM, 1 EVERY 5 HOURS
  184. BISACODYL [Concomitant]
     Active Substance: BISACODYL
     Indication: Constipation
     Dosage: 10 MG, PRN
  185. POTASSIUM CHLORIDE [Concomitant]
     Active Substance: POTASSIUM CHLORIDE
     Indication: Constipation
     Dosage: 17 G, QD
  186. POTASSIUM CHLORIDE [Concomitant]
     Active Substance: POTASSIUM CHLORIDE
     Indication: Constipation
     Dosage: UNKNOWN
  187. POTASSIUM CHLORIDE [Concomitant]
     Active Substance: POTASSIUM CHLORIDE
     Indication: Product used for unknown indication
     Dosage: UNK
  188. POTASSIUM CHLORIDE [Concomitant]
     Active Substance: POTASSIUM CHLORIDE
     Dosage: UNK
  189. POTASSIUM CHLORIDE [Concomitant]
     Active Substance: POTASSIUM CHLORIDE
     Dosage: 17 MG, QD
  190. POTASSIUM CHLORIDE [Concomitant]
     Active Substance: POTASSIUM CHLORIDE
     Dosage: UNK
  191. POTASSIUM CHLORIDE [Concomitant]
     Active Substance: POTASSIUM CHLORIDE
     Dosage: 17 G, QD
  192. DISODIUM HYDROGEN CITRATE [Concomitant]
     Active Substance: DISODIUM HYDROGEN CITRATE
     Indication: Thrombosis
     Dosage: UNKNOWN
  193. DISODIUM HYDROGEN CITRATE [Concomitant]
     Active Substance: DISODIUM HYDROGEN CITRATE
     Dosage: UNK
  194. DISODIUM HYDROGEN CITRATE [Concomitant]
     Active Substance: DISODIUM HYDROGEN CITRATE
     Dosage: 2.5 MILLILITER, AS NECESSARY
  195. CALCITRIOL [Concomitant]
     Active Substance: CALCITRIOL
     Indication: Vitamin D
     Dosage: 0.25 UG, QD
  196. CALCITRIOL [Concomitant]
     Active Substance: CALCITRIOL
     Indication: Vitamin D
     Dosage: 0.25 UG, QD
  197. CALCITRIOL [Concomitant]
     Active Substance: CALCITRIOL
     Indication: Product used for unknown indication
     Dosage: 0.25 UG, QD (ONCE A DAY)
  198. CALCITRIOL [Concomitant]
     Active Substance: CALCITRIOL
     Dosage: 0.25 UG, QD,
  199. CALCITRIOL [Concomitant]
     Active Substance: CALCITRIOL
     Dosage: 500 MILLIGRAM, Q8HR,
  200. CALCITRIOL [Concomitant]
     Active Substance: CALCITRIOL
     Dosage: UNK
  201. INSULIN NOS [Concomitant]
     Active Substance: INSULIN NOS
     Indication: Diabetes mellitus
     Dosage: UNK
  202. AMLODIPINE [Concomitant]
     Active Substance: AMLODIPINE BESYLATE
     Indication: Intentional product misuse
     Dosage: UNK
  203. AMLODIPINE [Concomitant]
     Active Substance: AMLODIPINE BESYLATE
     Indication: Analgesic therapy
     Dosage: UNK
  204. AMLODIPINE [Concomitant]
     Active Substance: AMLODIPINE BESYLATE
     Indication: Off label use
  205. DEXTROSE [Concomitant]
     Active Substance: DEXTROSE
     Indication: Nutritional supplementation
     Dosage: 12.5 G, PRN
  206. DEXTROSE [Concomitant]
     Active Substance: DEXTROSE
     Indication: Nutritional supplementation
     Dosage: 12.5 G UNK
  207. DEXTROSE [Concomitant]
     Active Substance: DEXTROSE
     Indication: Intentional product misuse
     Dosage: 12.5 G, QD
  208. DEXTROSE [Concomitant]
     Active Substance: DEXTROSE
     Indication: Off label use
     Dosage: 12.5 G, PRN
  209. DEXTROSE [Concomitant]
     Active Substance: DEXTROSE
     Indication: Product used for unknown indication
     Dosage: 12.5 MG
  210. DEXTROSE [Concomitant]
     Active Substance: DEXTROSE
     Indication: Product used for unknown indication
     Dosage: 12 GRAM, 1 /DAY
  211. DEXTROSE [Concomitant]
     Active Substance: DEXTROSE
     Dosage: 12.5 G
  212. DEXTROSE [Concomitant]
     Active Substance: DEXTROSE
     Dosage: 12.5 G, QD
  213. DEXTROSE [Concomitant]
     Active Substance: DEXTROSE
     Dosage: 12.5 MG, QD (ONCE A DAY)
  214. DEXTROSE [Concomitant]
     Active Substance: DEXTROSE
     Dosage: 1.25 GRAM (NOT SPECIFIED)
  215. DEXTROSE [Concomitant]
     Active Substance: DEXTROSE
     Dosage: 1 DOSAGE FORM, 1 /DAY (1 EVERY 1 DAYS)
  216. DEXTROSE [Concomitant]
     Active Substance: DEXTROSE
     Dosage: 12.5 G, PRN
  217. DEXTROSE [Concomitant]
     Active Substance: DEXTROSE
     Dosage: 12.5 G, PRN
  218. DEXTROSE [Concomitant]
     Active Substance: DEXTROSE
     Dosage: 12.5 MILLIGRAM, AS NEEDED (12.5 GRAM, PRN)
  219. DEXTROSE [Concomitant]
     Active Substance: DEXTROSE
     Dosage: 12.5 G, PRN
  220. DEXTROSE [Concomitant]
     Active Substance: DEXTROSE
     Dosage: 12.5 MG, QD
  221. RIBOFLAVIN 5^-PHOSPHATE SODIUM ANHYDROUS [Concomitant]
     Active Substance: RIBOFLAVIN 5^-PHOSPHATE SODIUM ANHYDROUS
     Dosage: 17 G, QD

REACTIONS (24)
  - Swelling [Fatal]
  - Nausea [Fatal]
  - Multiple organ dysfunction syndrome [Fatal]
  - Vomiting [Fatal]
  - Condition aggravated [Fatal]
  - Appendicolith [Fatal]
  - Sepsis [Fatal]
  - Ascites [Fatal]
  - General physical health deterioration [Fatal]
  - Thrombosis [Fatal]
  - Chronic obstructive pulmonary disease [Fatal]
  - Hyperphosphataemia [Fatal]
  - Stress [Fatal]
  - Constipation [Fatal]
  - Abdominal pain [Fatal]
  - Abdominal distension [Fatal]
  - Ventricular fibrillation [Fatal]
  - Cardiogenic shock [Fatal]
  - Drug intolerance [Fatal]
  - Appendicitis [Fatal]
  - Blood phosphorus increased [Fatal]
  - Hyponatraemia [Fatal]
  - Dry mouth [Fatal]
  - Somnolence [Fatal]
